FAERS Safety Report 18952474 (Version 2)
Quarter: 2021Q2

REPORT INFORMATION
  Report Type: Report from Study
  Country: AU (occurrence: AU)
  Receive Date: 20210301
  Receipt Date: 20210430
  Transmission Date: 20210717
  Serious: Yes (Hospitalization)
  Sender: FDA-Public Use
  Company Number: AU-BRISTOL-MYERS SQUIBB COMPANY-BMS-2021-018616

PATIENT
  Age: 83 Year
  Sex: Male

DRUGS (21)
  1. NIVOLUMAB [Suspect]
     Active Substance: NIVOLUMAB
     Indication: GLIOBLASTOMA
     Dosage: 290 MG ON DAY 1 AND DAY 15 OF A 28 DAY CYCLE
     Route: 042
     Dates: start: 20210104, end: 20210215
  2. DEXAMETHASONE. [Concomitant]
     Active Substance: DEXAMETHASONE
     Dosage: 4 MILLIGRAM
     Route: 048
     Dates: start: 20201118, end: 20201122
  3. DEXAMETHASONE. [Concomitant]
     Active Substance: DEXAMETHASONE
     Dosage: 1 MILLIGRAM
     Route: 048
     Dates: start: 20210111
  4. PERINDOPRIL [Concomitant]
     Active Substance: PERINDOPRIL
     Indication: PROPHYLAXIS
     Dosage: 5 MILLIGRAM, QD
     Route: 065
  5. DEXAMETHASONE. [Concomitant]
     Active Substance: DEXAMETHASONE
     Dosage: 3 MILLIGRAM
     Route: 048
     Dates: start: 20201123, end: 20201129
  6. METOPROLOL. [Concomitant]
     Active Substance: METOPROLOL
     Indication: PROPHYLAXIS
     Dosage: 25 MILLIGRAM, BID
     Route: 065
  7. DABIGATRAN [Concomitant]
     Active Substance: DABIGATRAN
     Indication: ANTICOAGULANT THERAPY
     Dosage: 110 MILLIGRAM, BID
     Route: 065
  8. COLOXYL C SENNA [Concomitant]
     Active Substance: DOCUSATE SODIUM\SENNOSIDES A AND B
     Indication: FAECES SOFT
     Dosage: UNK
     Route: 065
     Dates: start: 20201021
  9. DEXAMETHASONE. [Concomitant]
     Active Substance: DEXAMETHASONE
     Dosage: 4 MILLIGRAM
     Route: 048
     Dates: start: 20201116
  10. DEXAMETHASONE. [Concomitant]
     Active Substance: DEXAMETHASONE
     Dosage: 2 MILLIGRAM
     Route: 048
     Dates: start: 20201130, end: 20201207
  11. DEXAMETHASONE. [Concomitant]
     Active Substance: DEXAMETHASONE
     Dosage: 1.5 MILLIGRAM
     Route: 048
     Dates: start: 20201231, end: 20210110
  12. DEXAMETHASONE. [Concomitant]
     Active Substance: DEXAMETHASONE
     Indication: PRODUCT USED FOR UNKNOWN INDICATION
     Dosage: 2 MILLIGRAM
     Route: 048
     Dates: start: 20201009, end: 20201115
  13. DUTASTERIDE AND TAMSULOSIN HCL [Concomitant]
     Indication: BENIGN PROSTATIC HYPERPLASIA
     Dosage: 500/400 MICROGRAM
     Route: 065
  14. APIXABAN [Concomitant]
     Active Substance: APIXABAN
     Indication: PRODUCT USED FOR UNKNOWN INDICATION
     Route: 065
  15. KEPPRA [Concomitant]
     Active Substance: LEVETIRACETAM
     Indication: SEIZURE PROPHYLAXIS
     Dosage: 500 MILLIGRAM, BID
     Route: 065
     Dates: start: 20200926
  16. DEXAMETHASONE. [Concomitant]
     Active Substance: DEXAMETHASONE
     Dosage: 1 MILLIGRAM
     Route: 048
     Dates: start: 20201208, end: 20201214
  17. DEXAMETHASONE. [Concomitant]
     Active Substance: DEXAMETHASONE
     Dosage: 2 MILLIGRAM
     Route: 048
     Dates: start: 20201215, end: 20201230
  18. AVASTIN [SIMVASTATIN] [Concomitant]
     Active Substance: SIMVASTATIN
     Indication: PRODUCT USED FOR UNKNOWN INDICATION
     Route: 065
  19. DEXAMETHASONE. [Concomitant]
     Active Substance: DEXAMETHASONE
     Dosage: 6 MILLIGRAM
     Route: 048
     Dates: start: 20201117
  20. TEMOZOLOMIDE. [Concomitant]
     Active Substance: TEMOZOLOMIDE
     Indication: GLIOBLASTOMA
     Dosage: 280 MILLIGRAM, QD
     Route: 048
     Dates: start: 20210104
  21. ESOMEPRAZOLE. [Concomitant]
     Active Substance: ESOMEPRAZOLE MAGNESIUM
     Indication: GASTROOESOPHAGEAL REFLUX DISEASE
     Dosage: 20 MILLIGRAM, QD
     Route: 065

REACTIONS (1)
  - Cognitive disorder [Recovered/Resolved with Sequelae]

NARRATIVE: CASE EVENT DATE: 20210219
